FAERS Safety Report 21176497 (Version 1)
Quarter: 2022Q3

REPORT INFORMATION
  Report Type: Spontaneous
  Country: US (occurrence: US)
  Receive Date: 20220805
  Receipt Date: 20220805
  Transmission Date: 20221026
  Serious: No
  Sender: FDA-Public Use
  Company Number: US-PFIZER INC-202201032100

PATIENT
  Age: 67 Year

DRUGS (1)
  1. PAXLOVID [Suspect]
     Active Substance: NIRMATRELVIR\RITONAVIR
     Indication: COVID-19 treatment
     Dosage: UNK, 2X/DAY
     Dates: start: 20220728, end: 20220731

REACTIONS (7)
  - Therapeutic product effect incomplete [Unknown]
  - Taste disorder [Unknown]
  - Terminal insomnia [Unknown]
  - Hyperhidrosis [Unknown]
  - Feeling abnormal [Unknown]
  - Pyrexia [Unknown]
  - Eating disorder [Unknown]
